FAERS Safety Report 6470577-3 (Version None)
Quarter: 2009Q4

REPORT INFORMATION
  Report Type: 
  Country: None (occurrence: None)
  Receive Date: 20091203
  Receipt Date: 20090728
  Transmission Date: 20100525
  Serious: No
  Sender: FDA-Public Use
  Company Number: US-ABBOTT-09P-163-0584982-00

PATIENT
  Sex: Female
  Weight: 118.04 kg

DRUGS (6)
  1. MERIDIA [Suspect]
     Indication: WEIGHT DECREASED
     Route: 048
     Dates: start: 20090703, end: 20090707
  2. THEOPHYLLINE [Concomitant]
     Indication: ASTHMA
  3. ADVAIR DISKUS 100/50 [Concomitant]
     Indication: ASTHMA
     Dosage: FORM STRENGTH:250/50 MG
  4. ACCOLETE [Concomitant]
     Indication: ASTHMA
  5. NEXIUM [Concomitant]
     Indication: GASTROOESOPHAGEAL REFLUX DISEASE
  6. ALBUTEROL [Concomitant]
     Indication: ASTHMA

REACTIONS (1)
  - CHEST DISCOMFORT [None]
